FAERS Safety Report 11416235 (Version 2)
Quarter: 2015Q3

REPORT INFORMATION
  Report Type: Spontaneous
  Country: US (occurrence: US)
  Receive Date: 20150825
  Receipt Date: 20150922
  Transmission Date: 20151125
  Serious: No
  Sender: FDA-Public Use
  Company Number: US-PFIZER INC-2015278610

PATIENT
  Age: 19 Year
  Sex: Male
  Weight: 118 kg

DRUGS (1)
  1. QUILLIVANT XR [Suspect]
     Active Substance: METHYLPHENIDATE HYDROCHLORIDE
     Indication: DISTURBANCE IN ATTENTION
     Dosage: 6 ML, 1X/DAY IN THE MORNING
     Route: 048
     Dates: start: 20150707

REACTIONS (1)
  - Drug ineffective [Unknown]
